FAERS Safety Report 4651389-X (Version None)
Quarter: 2005Q2

REPORT INFORMATION
  Report Type: 
  Country: None (occurrence: None)
  Receive Date: 20050425
  Receipt Date: 20050412
  Transmission Date: 20051028
  Serious: Yes (Hospitalization)
  Sender: FDA-Public Use
  Company Number: 2005-00330

PATIENT
  Age: 74 Year
  Sex: Male

DRUGS (1)
  1. IMMUCYST (BCG - IT (CONNAUGHT)), AVENTIS PASTEUR LTD. [Suspect]
     Indication: BLADDER CANCER
     Dosage: I.VES.
     Dates: start: 20040101

REACTIONS (4)
  - CYSTITIS ESCHERICHIA [None]
  - EPIDIDYMITIS [None]
  - ORCHITIS [None]
  - PROCEDURAL COMPLICATION [None]
